FAERS Safety Report 8419680-9 (Version None)
Quarter: 2012Q2

REPORT INFORMATION
  Report Type: 
  Country: None (occurrence: None)
  Receive Date: 20120604
  Receipt Date: 20120604
  Transmission Date: 20120825
  Serious: Yes (Hospitalization)
  Sender: FDA-Public Use
  Company Number: None

PATIENT
  Age: 65 Year
  Sex: Male
  Weight: 78.9259 kg

DRUGS (1)
  1. CIPROFLOXACIN EXTENDED RELEASE [Suspect]
     Indication: PROSTATE INFECTION
     Dosage: 1 DAILY PO
     Route: 048
     Dates: start: 20120530, end: 20120601

REACTIONS (3)
  - HEART RATE INCREASED [None]
  - DRUG INTERACTION [None]
  - HYPERTENSION [None]
